FAERS Safety Report 8154195-7 (Version None)
Quarter: 2012Q1

REPORT INFORMATION
  Report Type: 
  Country: None (occurrence: None)
  Receive Date: 20120103
  Receipt Date: 20111027
  Transmission Date: 20120608
  Serious: No
  Sender: FDA-Public Use
  Company Number: AE-2011-002809

PATIENT
  Age: 59 Year
  Sex: Female
  Weight: 71.6683 kg

DRUGS (3)
  1. INTERFERON (PEGINTERFERON ALFA-2A) [Concomitant]
  2. INCIVEK [Suspect]
     Dosage: 6 OTHER (2 OTHER,2 TABS),ORAL
     Route: 048
     Dates: start: 20110915
  3. COPEGUS [Concomitant]

REACTIONS (1)
  - PYREXIA [None]
